FAERS Safety Report 21228258 (Version 2)
Quarter: 2022Q3

REPORT INFORMATION
  Report Type: Report from Study
  Country: JP (occurrence: JP)
  Receive Date: 20220818
  Receipt Date: 20220907
  Transmission Date: 20221026
  Serious: Yes (Other)
  Sender: FDA-Public Use
  Company Number: JP-GUERBET-JP-20220113

PATIENT
  Age: 56 Year
  Sex: Male

DRUGS (3)
  1. LIPIODOL [Suspect]
     Active Substance: ETHIODIZED OIL
     Indication: Therapeutic embolisation
     Dosage: LIPIODOL WITH NBCA AT DILUTION RATE OF 1/8 AT DOSE OF 0.8 EACH RIGHT AND LEFT IIAS
     Route: 013
     Dates: start: 20120615, end: 20120615
  2. ENBUCRILATE [Suspect]
     Active Substance: ENBUCRILATE
     Indication: Therapeutic embolisation
     Dosage: LIPIODOL WITH NBCA AT DILUTION RATE OF 1/8 AT DOSE OF 0.8 EACH RIGHT AND LEFT IIAS
     Route: 013
     Dates: start: 20120615, end: 20120615
  3. DEXTROSE [Concomitant]
     Active Substance: DEXTROSE
     Indication: Product used for unknown indication
     Dosage: APPROXIMATELY 2.0 ML OF 5% DEXTROSE SOLUTION
     Route: 065
     Dates: start: 20120615, end: 20120615

REACTIONS (2)
  - Muscle necrosis [Unknown]
  - Product use in unapproved indication [Unknown]
